FAERS Safety Report 14802784 (Version 1)
Quarter: 2018Q2

REPORT INFORMATION
  Report Type: Spontaneous
  Country: BR (occurrence: BR)
  Receive Date: 20180424
  Receipt Date: 20180424
  Transmission Date: 20180711
  Serious: Yes (Other)
  Sender: FDA-Public Use
  Company Number: BR-PFIZER INC-2017362271

PATIENT
  Age: 42 Year
  Sex: Female

DRUGS (7)
  1. LORAX [Suspect]
     Active Substance: LORAZEPAM
     Indication: DEPRESSION
  2. AMITRIPTYLINE [Suspect]
     Active Substance: AMITRIPTYLINE
     Indication: DEPRESSION
  3. QUETIAPINE. [Suspect]
     Active Substance: QUETIAPINE
     Indication: ANXIETY
     Dosage: 1 DF, 1X/DAY (AT NIGHT)
     Dates: start: 2015
  4. AEROLIN [Concomitant]
     Active Substance: ALBUTEROL
     Dosage: UNK
  5. LORAX [Suspect]
     Active Substance: LORAZEPAM
     Indication: ANXIETY
     Dosage: ONE AND HALF DAILY
     Dates: start: 2003
  6. AMITRIPTYLINE [Suspect]
     Active Substance: AMITRIPTYLINE
     Indication: ANXIETY
     Dosage: 2 DF, 2X/DAY ( TABLETS IN THE MORNING AND 2 TABLETS AT NIGHT)
     Dates: start: 2003
  7. QUETIAPINE. [Suspect]
     Active Substance: QUETIAPINE
     Indication: DEPRESSION

REACTIONS (12)
  - Mental disorder [Recovered/Resolved]
  - Sluggishness [Not Recovered/Not Resolved]
  - Dysstasia [Not Recovered/Not Resolved]
  - Arrhythmia [Recovered/Resolved]
  - Fall [Not Recovered/Not Resolved]
  - Menopause [Recovered/Resolved]
  - Depressed mood [Not Recovered/Not Resolved]
  - Drug dependence [Not Recovered/Not Resolved]
  - Drug ineffective [Recovered/Resolved]
  - Hypotension [Not Recovered/Not Resolved]
  - Feeling abnormal [Recovered/Resolved]
  - Asthenia [Not Recovered/Not Resolved]

NARRATIVE: CASE EVENT DATE: 2003
